FAERS Safety Report 4757284-X (Version None)
Quarter: 2005Q3

REPORT INFORMATION
  Report Type: 
  Country: None (occurrence: None)
  Receive Date: 20050829
  Receipt Date: 20050824
  Transmission Date: 20060218
  Serious: Yes (Death)
  Sender: FDA-Public Use
  Company Number: A001-002-006621

PATIENT
  Age: 81 Year
  Sex: Male
  Weight: 68 kg

DRUGS (3)
  1. ARICEPT [Suspect]
     Indication: DEMENTIA
     Dosage: 5 MG, 1 IN 1 D, ORAL
     Route: 048
     Dates: start: 20040216, end: 20040218
  2. HYTRIN [Concomitant]
  3. INSULIN (INSULIN) [Concomitant]
     Indication: HEAD INJURY

REACTIONS (1)
  - MYOCARDIAL INFARCTION [None]
